FAERS Safety Report 23707072 (Version 2)
Quarter: 2024Q2

REPORT INFORMATION
  Report Type: Spontaneous
  Country: US (occurrence: US)
  Receive Date: 20240404
  Receipt Date: 20240409
  Transmission Date: 20240716
  Serious: Yes (Other)
  Sender: FDA-Public Use
  Company Number: US-009507513-2403USA009152

PATIENT
  Sex: Male
  Weight: 89 kg

DRUGS (6)
  1. TEMODAR [Suspect]
     Active Substance: TEMOZOLOMIDE
     Indication: Astrocytoma malignant
     Dosage: 160 MILLIGRAM, DAILY (QD); STRENGTH: 140 MG AND 20 MG 1 CAPSULE DAILY
     Route: 048
     Dates: start: 20240215, end: 20240325
  2. ATORVASTATIN [Concomitant]
     Active Substance: ATORVASTATIN
  3. AMLODIPINE [Concomitant]
     Active Substance: AMLODIPINE BESYLATE
  4. NEXIUM I.V. [Concomitant]
     Active Substance: ESOMEPRAZOLE SODIUM
  5. ASPIRIN [Concomitant]
     Active Substance: ASPIRIN
  6. ASPIRIN [Concomitant]
     Active Substance: ASPIRIN

REACTIONS (3)
  - Diverticulitis [Recovered/Resolved]
  - Diverticulitis [Recovering/Resolving]
  - Product use issue [Unknown]

NARRATIVE: CASE EVENT DATE: 20240101
